FAERS Safety Report 9064865 (Version 1)
Quarter: 2013Q1

REPORT INFORMATION
  Report Type: Spontaneous
  Country: US (occurrence: US)
  Receive Date: 20130130
  Receipt Date: 20130130
  Transmission Date: 20140127
  Serious: Yes (Disabling, Other)
  Sender: FDA-Public Use
  Company Number: US-009507513-1301USA012157

PATIENT
  Sex: Female

DRUGS (2)
  1. FOSAMAX [Suspect]
     Dosage: UNK
     Route: 048
     Dates: start: 2001, end: 201101
  2. ALENDRONATE SODIUM [Suspect]
     Dosage: UNK
     Dates: start: 2001, end: 201101

REACTIONS (1)
  - Femur fracture [Unknown]
